FAERS Safety Report 8398614 (Version 2)
Quarter: 2012Q4

REPORT INFORMATION
  Report Type: 
  Country: IE (occurrence: IE)
  Receive Date: 20120209
  Receipt Date: 20121210
  Transmission Date: 20130627
  Serious: Yes (Death, Other)
  Sender: FDA-Public Use
  Company Number: IE-ABBOTT-12P-229-0902350-00

PATIENT
  Age: 54 Year
  Sex: Female
  Weight: 127 kg

DRUGS (5)
  1. HUMIRA 40 MG/ 0.8 ML PRE-FILLED SYRINGE [Suspect]
     Indication: PSORIASIS
     Route: 058
     Dates: start: 20070419, end: 20100722
  2. HUMIRA 40 MG/ 0.8 ML PRE-FILLED SYRINGE [Suspect]
     Dates: start: 201004
  3. CRESTOR [Concomitant]
     Indication: HYPERLIPIDAEMIA
  4. ELTROXIN [Concomitant]
     Indication: HYPOTHYROIDISM
  5. ACCURETIC [Concomitant]
     Indication: HYPERTENSION
     Dosage: 20mg/12.5mg

REACTIONS (3)
  - Cervix cancer metastatic [Fatal]
  - Vaginal haemorrhage [Unknown]
  - Lower respiratory tract infection [Unknown]
